FAERS Safety Report 21055597 (Version 4)
Quarter: 2022Q3

REPORT INFORMATION
  Report Type: Spontaneous
  Country: US (occurrence: US)
  Receive Date: 20220708
  Receipt Date: 20220817
  Transmission Date: 20221026
  Serious: No
  Sender: FDA-Public Use
  Company Number: US-AIMMUNE THERAPEUTICS, INC.-2022AIMT00517

PATIENT

DRUGS (4)
  1. PALFORZIA [Suspect]
     Active Substance: PEANUT
     Indication: Food allergy
     Dosage: 200 MG, 1XDAY
     Route: 048
     Dates: start: 20220623, end: 20220624
  2. PALFORZIA [Suspect]
     Active Substance: PEANUT
     Dosage: 200 MG, ONCE, LAST DOSE PRIOR TO EVENTS
     Route: 048
     Dates: start: 20220624, end: 20220624
  3. PALFORZIA [Suspect]
     Active Substance: PEANUT
     Dosage: 160 MG, 1X/DAY, DOSE RESTARTED AT DECREASED LEVEL
     Route: 048
     Dates: start: 20220627, end: 20220713
  4. PALFORZIA [Suspect]
     Active Substance: PEANUT
     Dosage: 200 MG, 1X/DAY, RE UP-DOSED
     Route: 048
     Dates: start: 20220714

REACTIONS (7)
  - Adverse reaction [Recovered/Resolved]
  - Oropharyngeal discomfort [Recovered/Resolved]
  - Lacrimation increased [Recovered/Resolved]
  - Periorbital swelling [Recovered/Resolved]
  - Nasal congestion [Recovered/Resolved]
  - Rhinorrhoea [Recovered/Resolved]
  - Pruritus [Recovered/Resolved]

NARRATIVE: CASE EVENT DATE: 20220624
